FAERS Safety Report 11266818 (Version 2)
Quarter: 2017Q1

REPORT INFORMATION
  Report Type: Spontaneous
  Country: US (occurrence: US)
  Receive Date: 20150713
  Receipt Date: 20170228
  Transmission Date: 20170428
  Serious: Yes (Other)
  Sender: FDA-Public Use
  Company Number: US-ELI_LILLY_AND_COMPANY-US201507001600

PATIENT
  Sex: Female

DRUGS (8)
  1. CYMBALTA [Suspect]
     Active Substance: DULOXETINE HYDROCHLORIDE
     Dosage: 90 MG, UNKNOWN
     Route: 065
  2. RISPERIDONE. [Concomitant]
     Active Substance: RISPERIDONE
     Dosage: UNK, UNKNOWN
     Route: 065
  3. CYMBALTA [Suspect]
     Active Substance: DULOXETINE HYDROCHLORIDE
     Dosage: 20 MG, BID
     Route: 065
  4. CYMBALTA [Suspect]
     Active Substance: DULOXETINE HYDROCHLORIDE
     Indication: DEPRESSION
     Dosage: 30 MG, QD
     Route: 065
  5. VENLAFAXINE [Concomitant]
     Active Substance: VENLAFAXINE HYDROCHLORIDE
     Dosage: UNK, UNKNOWN
     Route: 065
  6. CYMBALTA [Suspect]
     Active Substance: DULOXETINE HYDROCHLORIDE
     Indication: PAIN
     Dosage: 60 MG, QD
     Route: 065
     Dates: start: 2007
  7. CLONOPIN [Concomitant]
     Active Substance: CLONAZEPAM
     Dosage: UNK, UNKNOWN
     Route: 065
  8. LORAZEPAM. [Concomitant]
     Active Substance: LORAZEPAM
     Dosage: UNK UNK, UNKNOWN
     Route: 065

REACTIONS (30)
  - Akathisia [Unknown]
  - Agitation [Unknown]
  - Homicidal ideation [Unknown]
  - Hallucination, auditory [Unknown]
  - Vomiting [Unknown]
  - Back pain [Unknown]
  - Memory impairment [Unknown]
  - Suicide attempt [Unknown]
  - Fatigue [Unknown]
  - Hyperhidrosis [Unknown]
  - Disturbance in attention [Unknown]
  - Aggression [Unknown]
  - Paraesthesia [Unknown]
  - Depression [Unknown]
  - Drug withdrawal syndrome [Unknown]
  - Vertigo [Unknown]
  - Headache [Unknown]
  - Dysphoria [Unknown]
  - Panic attack [Unknown]
  - Migraine [Unknown]
  - Influenza like illness [Unknown]
  - Irritability [Unknown]
  - Nausea [Unknown]
  - Anxiety [Unknown]
  - Hypomania [Unknown]
  - Abdominal pain upper [Unknown]
  - Crying [Unknown]
  - Confusional state [Unknown]
  - Suicidal ideation [Unknown]
  - Dizziness [Unknown]
